FAERS Safety Report 19942241 (Version 1)
Quarter: 2021Q4

REPORT INFORMATION
  Report Type: Spontaneous
  Country: US (occurrence: US)
  Receive Date: 20211011
  Receipt Date: 20211011
  Transmission Date: 20220303
  Serious: No
  Sender: FDA-Public Use
  Company Number: US-ELI_LILLY_AND_COMPANY-US202109012234

PATIENT
  Age: 29 Year
  Sex: Female

DRUGS (1)
  1. TALTZ [Suspect]
     Active Substance: IXEKIZUMAB
     Indication: Psoriasis
     Dosage: 80 MG, UNKNOWN
     Route: 058
     Dates: start: 20210826

REACTIONS (4)
  - Disturbance in attention [Unknown]
  - Panic attack [Recovered/Resolved]
  - Injection site discolouration [Unknown]
  - Accidental underdose [Recovered/Resolved]

NARRATIVE: CASE EVENT DATE: 20210922
